FAERS Safety Report 17259949 (Version 1)
Quarter: 2020Q1

REPORT INFORMATION
  Report Type: Report from Study
  Country: TW (occurrence: TW)
  Receive Date: 20200111
  Receipt Date: 20200111
  Transmission Date: 20200409
  Serious: Yes (Death, Hospitalization, Other)
  Sender: FDA-Public Use
  Company Number: TW-TAKEDA-2019TUS046516

PATIENT
  Sex: Male

DRUGS (1)
  1. VEDOLIZUMAB [Suspect]
     Active Substance: VEDOLIZUMAB
     Indication: COLITIS ULCERATIVE
     Dosage: 300 MILLIGRAM
     Route: 042
     Dates: start: 20181004, end: 20191216

REACTIONS (7)
  - Acute respiratory distress syndrome [Fatal]
  - Influenza [Unknown]
  - Septic shock [Fatal]
  - Pneumonia staphylococcal [Unknown]
  - Productive cough [Unknown]
  - Chest pain [Unknown]
  - Upper-airway cough syndrome [Unknown]

NARRATIVE: CASE EVENT DATE: 2019
